FAERS Safety Report 23580074 (Version 1)
Quarter: 2024Q1

REPORT INFORMATION
  Report Type: Spontaneous
  Country: CN (occurrence: CN)
  Receive Date: 20240229
  Receipt Date: 20240229
  Transmission Date: 20240410
  Serious: Yes (Other)
  Sender: FDA-Public Use
  Company Number: CN-GILEAD-2024-0663336

PATIENT
  Age: 34 Year
  Sex: Female

DRUGS (1)
  1. VEMLIDY [Suspect]
     Active Substance: TENOFOVIR ALAFENAMIDE FUMARATE
     Indication: Hepatitis B
     Dosage: UNK
     Route: 065

REACTIONS (3)
  - Deafness [Not Recovered/Not Resolved]
  - Lipids increased [Not Recovered/Not Resolved]
  - Tinnitus [Not Recovered/Not Resolved]
